FAERS Safety Report 9232834 (Version 1)
Quarter: 2013Q2

REPORT INFORMATION
  Report Type: Report from Study
  Country: US (occurrence: US)
  Receive Date: 20130416
  Receipt Date: 20130416
  Transmission Date: 20140414
  Serious: Yes (Other)
  Sender: FDA-Public Use
  Company Number: US-JNJFOC-20130404765

PATIENT
  Age: 10 Year
  Sex: Female
  Weight: 43.09 kg

DRUGS (1)
  1. NUCYNTA [Suspect]
     Indication: PRODUCT USED FOR UNKNOWN INDICATION
     Dosage: ONCE EVERY 20 MINUTES
     Route: 048
     Dates: start: 20121025

REACTIONS (3)
  - Overdose [Recovering/Resolving]
  - Wrong drug administered [Recovering/Resolving]
  - Somnolence [Unknown]
